FAERS Safety Report 6573566-3 (Version None)
Quarter: 2010Q1

REPORT INFORMATION
  Report Type: 
  Country: None (occurrence: None)
  Receive Date: 20100204
  Receipt Date: 20100204
  Transmission Date: 20100710
  Serious: Yes (Hospitalization)
  Sender: FDA-Public Use
  Company Number: None

PATIENT
  Age: 52 Year
  Sex: Female
  Weight: 79.3795 kg

DRUGS (5)
  1. DEPAKOTE ER [Suspect]
     Indication: BIPOLAR DISORDER
     Dosage: 3 TABS QD PO
     Route: 048
     Dates: start: 20091223, end: 20100117
  2. DEPAKOTE ER [Suspect]
     Indication: GENERALISED ANXIETY DISORDER
     Dosage: 3 TABS QD PO
     Route: 048
     Dates: start: 20091223, end: 20100117
  3. SEROQUEL XR [Suspect]
     Indication: PANIC DISORDER WITH AGORAPHOBIA
     Dosage: 3 TABS QD PO
     Route: 048
     Dates: start: 20091223, end: 20100117
  4. PLACEBO [Suspect]
  5. ADVIL [Concomitant]

REACTIONS (2)
  - ANXIETY [None]
  - DEPRESSION [None]
